FAERS Safety Report 6255660-X (Version None)
Quarter: 2009Q3

REPORT INFORMATION
  Report Type: 
  Country: None (occurrence: None)
  Receive Date: 20090702
  Receipt Date: 20090624
  Transmission Date: 20100115
  Serious: Yes (Death, Other)
  Sender: FDA-Public Use
  Company Number: US-BAXTER-2008BH004455

PATIENT
  Age: 78 Year
  Sex: Female

DRUGS (2)
  1. HEPARIN SODIUM INJECTION [Suspect]
     Indication: PROPHYLAXIS
     Dosage: DOSE UNIT:UNKNOWN
     Route: 058
     Dates: start: 20071005, end: 20080101
  2. CONTRAST DYE [Suspect]
     Indication: COMPUTERISED TOMOGRAM
     Dosage: DOSE UNIT:UNKNOWN
     Route: 065
     Dates: start: 20071201, end: 20071201

REACTIONS (3)
  - HEPARIN-INDUCED THROMBOCYTOPENIA [None]
  - POST PROCEDURAL INFECTION [None]
  - RENAL FAILURE ACUTE [None]
